FAERS Safety Report 17886988 (Version 1)
Quarter: 2020Q2

REPORT INFORMATION
  Report Type: Spontaneous
  Country: US (occurrence: US)
  Receive Date: 20200611
  Receipt Date: 20200611
  Transmission Date: 20200714
  Serious: No
  Sender: FDA-Public Use
  Company Number: US-BRACCO-2019US02544

PATIENT
  Age: 76 Year
  Sex: Female

DRUGS (1)
  1. MULTIHANCE [Suspect]
     Active Substance: GADOBENATE DIMEGLUMINE
     Indication: MAGNETIC RESONANCE IMAGING BRAIN
     Dosage: 14 ML, SINGLE
     Route: 042
     Dates: start: 20190329, end: 20190329

REACTIONS (4)
  - Erythema [Recovering/Resolving]
  - Urticaria [Recovering/Resolving]
  - Sensory disturbance [Recovering/Resolving]
  - Pruritus [Recovered/Resolved]

NARRATIVE: CASE EVENT DATE: 20190329
